FAERS Safety Report 8660824 (Version 2)
Quarter: 2013Q1

REPORT INFORMATION
  Report Type: Spontaneous
  Country: US (occurrence: None)
  Receive Date: 20120626
  Receipt Date: 20121017
  Transmission Date: 20140127
  Serious: Yes (Hospitalization, Disabling, Other)
  Sender: FDA-Public Use
  Company Number: 2011MA008101

PATIENT
  Sex: Male
  Weight: 83.92 kg

DRUGS (37)
  1. METOCLOPRAMIDE [Suspect]
     Indication: GASTROOESOPHAGEAL REFLUX DISEASE
     Dosage: 10 MG; PO
     Route: 048
     Dates: start: 200612, end: 20070206
  2. ALFAZOSIN [Concomitant]
  3. ALFAZOSIN [Concomitant]
  4. BACLOFEN [Concomitant]
  5. CARBIDOPA + LEVODOPA [Concomitant]
  6. DOCUSATE [Concomitant]
  7. DULCOLAX (BISACODYL) [Concomitant]
  8. ELAVIL [Concomitant]
  9. GLYCOLAX [Concomitant]
  10. KETOTIFEN FUMARATE [Concomitant]
  11. FUMARATE [Concomitant]
  12. KLONOPIN [Concomitant]
  13. LEVITRA [Concomitant]
  14. MELOXICAM [Concomitant]
  15. METAMUCIL [Concomitant]
  16. MIDAZOLAM [Concomitant]
  17. MILK OF MAGNESIA [Concomitant]
  18. MIRAPEX [Concomitant]
  19. MOTRIN [Concomitant]
  20. NEXIUM [Concomitant]
  21. NIFEDIPINE [Concomitant]
  22. NORTRIPTYLINE HYDROCHLORIDE [Concomitant]
  23. PANTOPRAZOLE [Concomitant]
  24. PROSCAR [Concomitant]
  25. PROTONIX [Concomitant]
  26. RANITIDINE [Concomitant]
  27. SINEMET [Concomitant]
  28. LEVITRA [Concomitant]
  29. XALATAN [Concomitant]
  30. ZANTAC [Concomitant]
  31. ALFUZOSIN [Concomitant]
  32. AMBIEN [Concomitant]
  33. ATIVAN [Concomitant]
  34. PREVACID [Concomitant]
  35. PRILOSEC [Concomitant]
  36. PSYLLIUM [Concomitant]
  37. TAGAMET [Concomitant]

REACTIONS (63)
  - Gastrooesophageal reflux disease [None]
  - Tremor [None]
  - Benign prostatic hyperplasia [None]
  - Parkinsonism [None]
  - Heterophoria [None]
  - Headache [None]
  - Asthenia [None]
  - Musculoskeletal stiffness [None]
  - Dyspepsia [None]
  - Musculoskeletal pain [None]
  - Arthropathy [None]
  - White blood cell count decreased [None]
  - Throat irritation [None]
  - Cough [None]
  - Osteoarthritis [None]
  - Tenderness [None]
  - Spinal osteoarthritis [None]
  - Hiatus hernia [None]
  - Fall [None]
  - Abdominal pain upper [None]
  - Dysgeusia [None]
  - Chest pain [None]
  - Irritable bowel syndrome [None]
  - Erythema [None]
  - Scar [None]
  - Anxiety [None]
  - Pre-existing disease [None]
  - Condition aggravated [None]
  - Emotional disorder [None]
  - Nuclear magnetic resonance imaging brain abnormal [None]
  - Speech disorder [None]
  - Balance disorder [None]
  - Intervertebral disc protrusion [None]
  - Glaucoma [None]
  - Chromatopsia [None]
  - Muscle tightness [None]
  - Joint range of motion decreased [None]
  - Osteosclerosis [None]
  - Pain in extremity [None]
  - Parkinson^s disease [None]
  - Diplopia [None]
  - Anxiety disorder [None]
  - Gait disturbance [None]
  - Microcytosis [None]
  - Heterophoria [None]
  - Bradykinesia [None]
  - Constipation [None]
  - Pain [None]
  - Musculoskeletal pain [None]
  - Lumbar radiculopathy [None]
  - Spinal osteoarthritis [None]
  - Facet joint syndrome [None]
  - Osteoarthritis [None]
  - Hiatus hernia [None]
  - Rash [None]
  - Carotid artery disease [None]
  - Body temperature decreased [None]
  - Diplopia [None]
  - Restless legs syndrome [None]
  - Restlessness [None]
  - Asthenia [None]
  - Poor quality sleep [None]
  - Somatisation disorder [None]
